FAERS Safety Report 13466341 (Version 2)
Quarter: 2017Q2

REPORT INFORMATION
  Report Type: Report from Study
  Country: BE (occurrence: BE)
  Receive Date: 20170421
  Receipt Date: 20170501
  Transmission Date: 20170830
  Serious: Yes (Death)
  Sender: FDA-Public Use
  Company Number: BE-BEH-2017079761

PATIENT
  Sex: Male
  Weight: 60 kg

DRUGS (1)
  1. HIZENTRA [Suspect]
     Active Substance: HUMAN IMMUNOGLOBULIN G
     Indication: LEUKAEMIA
     Dosage: 1 X PER WEEK 1 UNIT; SOLUTION FOR INFUSION
     Route: 058
     Dates: start: 20160331

REACTIONS (1)
  - Death [Fatal]
